FAERS Safety Report 23921466 (Version 2)
Quarter: 2024Q3

REPORT INFORMATION
  Report Type: Spontaneous
  Country: US (occurrence: US)
  Receive Date: 20240530
  Receipt Date: 20240701
  Transmission Date: 20241016
  Serious: No
  Sender: CALLIDITAS THERAPEUTICS
  Company Number: US-Calliditas-2024CAL00831

PATIENT
  Age: 60 Day
  Sex: Male

DRUGS (1)
  1. TARPEYO [Suspect]
     Active Substance: BUDESONIDE
     Indication: IgA nephropathy
     Route: 048
     Dates: start: 20240404

REACTIONS (5)
  - Pollakiuria [Unknown]
  - Bone contusion [Unknown]
  - Contusion [Unknown]
  - Dyspnoea [Unknown]
  - Road traffic accident [Unknown]
